FAERS Safety Report 10853139 (Version 1)
Quarter: 2015Q1

REPORT INFORMATION
  Report Type: Spontaneous
  Country: US (occurrence: None)
  Receive Date: 20150218
  Receipt Date: 20150218
  Transmission Date: 20150721
  Serious: No
  Sender: FDA-Public Use
  Company Number: None

PATIENT
  Age: 46 Year
  Sex: Male
  Weight: 92.3 kg

DRUGS (11)
  1. SPIRONOLACTONE. [Concomitant]
     Active Substance: SPIRONOLACTONE
  2. PRILOSEC [Concomitant]
     Active Substance: OMEPRAZOLE MAGNESIUM
  3. MAGNESIUM [Concomitant]
     Active Substance: MAGNESIUM
  4. XIAFAXAN [Concomitant]
  5. EFFEXOR [Concomitant]
     Active Substance: VENLAFAXINE HYDROCHLORIDE
  6. NORCO [Concomitant]
     Active Substance: ACETAMINOPHEN\HYDROCODONE BITARTRATE
  7. CEFCINAR [Concomitant]
  8. MULTIVITAMIN [Concomitant]
     Active Substance: VITAMINS
  9. SOVALDI [Suspect]
     Active Substance: SOFOSBUVIR
     Indication: CHRONIC HEPATITIS C
     Route: 048
     Dates: start: 20140412
  10. LASIX [Concomitant]
     Active Substance: FUROSEMIDE
  11. RIBASPHERE [Concomitant]
     Active Substance: RIBAVIRIN
     Dosage: AM
     Route: 048

REACTIONS (2)
  - Clumsiness [None]
  - Amnesia [None]

NARRATIVE: CASE EVENT DATE: 20150212
